FAERS Safety Report 15010349 (Version 1)
Quarter: 2018Q2

REPORT INFORMATION
  Report Type: Spontaneous
  Country: US (occurrence: US)
  Receive Date: 20180528
  Receipt Date: 20180528
  Transmission Date: 20180711
  Serious: No
  Sender: FDA-Public Use
  Company Number: None

PATIENT
  Age: 63 Year
  Sex: Female
  Weight: 57.6 kg

DRUGS (6)
  1. DAYQUIL COLD AND FLU [Concomitant]
     Active Substance: ACETAMINOPHEN\DEXTROMETHORPHAN HYDROBROMIDE\PHENYLEPHRINE HYDROCHLORIDE
  2. DOXYCY LINE HYCLATE 100 MG. CAPS [Suspect]
     Active Substance: DOXYCYCLINE HYCLATE
     Indication: SINUSITIS
     Dosage: ?          QUANTITY:20 CAPSULE(S);?
     Route: 048
     Dates: start: 20180525, end: 20180525
  3. PRE-NATAL VITAMINS [Concomitant]
  4. MELATONIN [Concomitant]
     Active Substance: MELATONIN
  5. VITAMIN C [Concomitant]
     Active Substance: ASCORBIC ACID
  6. ACIDOPHILUS [Concomitant]
     Active Substance: LACTOBACILLUS ACIDOPHILUS

REACTIONS (1)
  - Vision blurred [None]

NARRATIVE: CASE EVENT DATE: 20180526
